FAERS Safety Report 8958468 (Version 1)
Quarter: 2012Q4

REPORT INFORMATION
  Report Type: Spontaneous
  Country: US (occurrence: None)
  Receive Date: 20121205
  Receipt Date: 20121205
  Transmission Date: 20130627
  Serious: Yes (Hospitalization, Other)
  Sender: FDA-Public Use
  Company Number: None

PATIENT
  Age: 75 Year
  Sex: Male
  Weight: 100 kg

DRUGS (1)
  1. LITHIUM [Suspect]
     Indication: SCHIZO-AFFECTIVE TYPE SCHIZOPHRENIA, CHRONIC STATE

REACTIONS (6)
  - Screaming [None]
  - Abnormal behaviour [None]
  - Physical assault [None]
  - Hemiparesis [None]
  - Dysarthria [None]
  - Confusional state [None]
